FAERS Safety Report 18567288 (Version 1)
Quarter: 2020Q4

REPORT INFORMATION
  Report Type: Spontaneous
  Country: AT (occurrence: AT)
  Receive Date: 20201202
  Receipt Date: 20201202
  Transmission Date: 20210114
  Serious: No
  Sender: FDA-Public Use
  Company Number: AT-TOLMAR, INC.-20AT022636

PATIENT
  Age: 93 Year
  Sex: Male

DRUGS (3)
  1. ELIGARD [Concomitant]
     Active Substance: LEUPROLIDE ACETATE
     Dosage: 22.5 MG
     Route: 065
     Dates: start: 20200901
  2. ELIGARD [Concomitant]
     Active Substance: LEUPROLIDE ACETATE
     Indication: PROSTATE CANCER
     Dosage: 22.5 MG
     Route: 065
     Dates: start: 201808
  3. ELIGARD [Suspect]
     Active Substance: LEUPROLIDE ACETATE
     Indication: PROSTATE CANCER
     Dosage: 45 MG, Q 6 MONTH
     Route: 065
     Dates: start: 20200901

REACTIONS (4)
  - Syringe issue [Unknown]
  - Intercepted product preparation error [Unknown]
  - Device leakage [Unknown]
  - Product availability issue [Unknown]

NARRATIVE: CASE EVENT DATE: 20200901
